FAERS Safety Report 21958943 (Version 1)
Quarter: 2023Q1

REPORT INFORMATION
  Report Type: Spontaneous
  Country: US (occurrence: None)
  Receive Date: 20230203
  Receipt Date: 20230203
  Transmission Date: 20230418
  Serious: No
  Sender: FDA-Public Use
  Company Number: None

PATIENT
  Sex: Female

DRUGS (1)
  1. ICATIBANT ACETATE [Suspect]
     Active Substance: ICATIBANT ACETATE
     Indication: Hereditary angioedema
     Dosage: FREQUENCY : AS NEEDED;?
     Route: 058
     Dates: start: 202208

REACTIONS (3)
  - Post procedural complication [None]
  - Hereditary angioedema [None]
  - Peripheral nerve decompression [None]
